FAERS Safety Report 7955456-4 (Version None)
Quarter: 2011Q4

REPORT INFORMATION
  Report Type: 
  Country: None (occurrence: None)
  Receive Date: 20111202
  Receipt Date: 20111124
  Transmission Date: 20120403
  Serious: Yes (Hospitalization)
  Sender: FDA-Public Use
  Company Number: US-ROCHE-784664

PATIENT
  Sex: Male
  Weight: 76.6 kg

DRUGS (2)
  1. AVASTIN [Suspect]
     Indication: HEPATIC NEOPLASM MALIGNANT
     Dosage: OVER 30-90 MIN ON DAYS 1 AND 15, TOTAL DOSE 766 MG.
     Route: 042
  2. TEMSIROLIMUS [Suspect]
     Indication: HEPATIC NEOPLASM MALIGNANT
     Dosage: ON DAYS 1,8,15 AND 22,
     Route: 042
     Dates: start: 20100708, end: 20100923

REACTIONS (5)
  - URINARY TRACT INFECTION [None]
  - BACK PAIN [None]
  - CONFUSIONAL STATE [None]
  - URINARY INCONTINENCE [None]
  - FATIGUE [None]
